FAERS Safety Report 9162272 (Version 1)
Quarter: 2013Q1

REPORT INFORMATION
  Report Type: Spontaneous
  Country: US (occurrence: None)
  Receive Date: 20130222
  Receipt Date: 20130222
  Transmission Date: 20140127
  Serious: Yes (Hospitalization, Other)
  Sender: FDA-Public Use
  Company Number: US-1196673

PATIENT
  Age: 85 Year
  Sex: Female

DRUGS (1)
  1. TRAVATAN Z [Suspect]
     Route: 047
     Dates: start: 2012

REACTIONS (8)
  - Arrhythmia [None]
  - Dizziness [None]
  - Blood pressure decreased [None]
  - Erythema [None]
  - Foreign body sensation in eyes [None]
  - Eye irritation [None]
  - Eye irritation [None]
  - Liquid product physical issue [None]
